FAERS Safety Report 23236348 (Version 4)
Quarter: 2025Q1

REPORT INFORMATION
  Report Type: Report from Study
  Country: GB (occurrence: GB)
  Receive Date: 20231128
  Receipt Date: 20250206
  Transmission Date: 20250409
  Serious: Yes (Hospitalization, Other)
  Sender: NOVARTIS
  Company Number: GB-002147023-NVSC2023GB245190

PATIENT
  Age: 39 Year
  Sex: Female

DRUGS (2)
  1. KESIMPTA [Suspect]
     Active Substance: OFATUMUMAB
     Indication: Relapsing-remitting multiple sclerosis
     Dosage: 20 MG, QW
     Route: 058
     Dates: start: 20231031
  2. KESIMPTA [Suspect]
     Active Substance: OFATUMUMAB
     Dosage: 20 MG, QMO
     Route: 058

REACTIONS (8)
  - Immune thrombocytopenia [Recovering/Resolving]
  - Neutropenia [Not Recovered/Not Resolved]
  - Abdominal distension [Unknown]
  - Injection site bruising [Unknown]
  - Rash erythematous [Unknown]
  - Nausea [Unknown]
  - Head discomfort [Unknown]
  - Injection site bruising [Unknown]
